FAERS Safety Report 18176048 (Version 1)
Quarter: 2020Q3

REPORT INFORMATION
  Report Type: Spontaneous
  Country: US (occurrence: US)
  Receive Date: 20200820
  Receipt Date: 20200820
  Transmission Date: 20201103
  Serious: No
  Sender: FDA-Public Use
  Company Number: US-BEH-2020121463

PATIENT
  Sex: Female

DRUGS (2)
  1. HAEGARDA [Suspect]
     Active Substance: HUMAN C1-ESTERASE INHIBITOR
     Indication: PROPHYLAXIS
  2. HAEGARDA [Suspect]
     Active Substance: HUMAN C1-ESTERASE INHIBITOR
     Indication: HEREDITARY ANGIOEDEMA
     Dosage: 3700 INTERNATIONAL UNIT, BIW (EVERY THREE DAYS)
     Route: 058
     Dates: start: 20180512

REACTIONS (5)
  - Keloid scar [Recovered/Resolved]
  - Product dose omission issue [Unknown]
  - Rash [Unknown]
  - No adverse event [Unknown]
  - Fall [Unknown]
